FAERS Safety Report 5889508-X (Version None)
Quarter: 2008Q3

REPORT INFORMATION
  Report Type: 
  Country: None (occurrence: None)
  Receive Date: 20080919
  Receipt Date: 20080909
  Transmission Date: 20090109
  Serious: Yes (Other)
  Sender: FDA-Public Use
  Company Number: US-WYE-H05917008

PATIENT

DRUGS (1)
  1. TORISEL [Suspect]
     Dosage: UNKNOWN
     Route: 065

REACTIONS (1)
  - PULMONARY FIBROSIS [None]
